FAERS Safety Report 8510339-6 (Version None)
Quarter: 2012Q3

REPORT INFORMATION
  Report Type: 
  Country: None (occurrence: None)
  Receive Date: 20120713
  Receipt Date: 20120705
  Transmission Date: 20120928
  Serious: Yes (Death)
  Sender: FDA-Public Use
  Company Number: PH-BAXTER-2012BAX010829

PATIENT
  Sex: Female

DRUGS (4)
  1. DIANEAL PD-2 W/ DEXTROSE 2.5% [Suspect]
     Route: 033
     Dates: start: 20110418
  2. FERROUS SULFATE TAB [Concomitant]
     Route: 065
  3. CLONIDINE [Concomitant]
     Route: 065
  4. AMLODIPINE [Concomitant]
     Route: 065

REACTIONS (2)
  - RENAL FAILURE CHRONIC [None]
  - CARDIAC ARREST [None]
